FAERS Safety Report 5534126-6 (Version None)
Quarter: 2007Q4

REPORT INFORMATION
  Report Type: 
  Country: None (occurrence: None)
  Receive Date: 20071120
  Receipt Date: 20071011
  Transmission Date: 20080405
  Serious: No
  Sender: FDA-Public Use
  Company Number: WAES 0710USA02753

PATIENT
  Age: 86 Year
  Sex: Female

DRUGS (2)
  1. JANUVIA [Suspect]
     Indication: TYPE 2 DIABETES MELLITUS
     Dosage: 50 MG/DAILY/PO
     Route: 048
     Dates: start: 20070701, end: 20071007
  2. THERAPY UNSPECIFIED [Concomitant]

REACTIONS (3)
  - INSOMNIA [None]
  - RASH ERYTHEMATOUS [None]
  - RASH PRURITIC [None]
